FAERS Safety Report 22062122 (Version 1)
Quarter: 2023Q1

REPORT INFORMATION
  Report Type: Spontaneous
  Country: DE (occurrence: DE)
  Receive Date: 20230304
  Receipt Date: 20230304
  Transmission Date: 20230417
  Serious: Yes (Life-Threatening, Hospitalization)
  Sender: FDA-Public Use
  Company Number: DE-drreddys-LIT/GER/23/0162043

PATIENT
  Age: 71 Year
  Sex: Female

DRUGS (4)
  1. BENDAMUSTINE [Suspect]
     Active Substance: BENDAMUSTINE
     Indication: Non-Hodgkin^s lymphoma recurrent
     Dosage: FOUR CYCLES
     Dates: start: 2017
  2. OBINUTUZUMAB [Suspect]
     Active Substance: OBINUTUZUMAB
     Dates: start: 2017
  3. OBINUTUZUMAB [Suspect]
     Active Substance: OBINUTUZUMAB
     Dosage: MAINTENANCE THERAPY
     Dates: end: 202012
  4. BISOPROLOL [Concomitant]
     Active Substance: BISOPROLOL
     Indication: Hypertension

REACTIONS (3)
  - COVID-19 [Recovered/Resolved]
  - B-cell aplasia [Not Recovered/Not Resolved]
  - Humoral immune defect [Recovered/Resolved]
